FAERS Safety Report 8519255-7 (Version None)
Quarter: 2012Q3

REPORT INFORMATION
  Report Type: 
  Country: None (occurrence: None)
  Receive Date: 20120718
  Receipt Date: 20120709
  Transmission Date: 20120928
  Serious: Yes (Hospitalization)
  Sender: FDA-Public Use
  Company Number: US-VERTEX PHARMACEUTICALS INC.-AE-2012-010011

PATIENT
  Sex: Male
  Weight: 63.56 kg

DRUGS (6)
  1. RIBAVIRIN [Concomitant]
     Dates: start: 20120305, end: 20120705
  2. PEGASYS [Concomitant]
     Route: 058
     Dates: start: 20120305, end: 20120705
  3. INCIVEK [Suspect]
     Indication: HEPATITIS C
     Route: 048
     Dates: start: 20111201
  4. INCIVEK [Suspect]
     Route: 048
     Dates: start: 20120305, end: 20120705
  5. RIBAVIRIN [Concomitant]
     Indication: HEPATITIS C
     Dates: start: 20111201
  6. PEGASYS [Concomitant]
     Indication: HEPATITIS C
     Dates: start: 20111201

REACTIONS (1)
  - ABDOMINAL PAIN UPPER [None]
